FAERS Safety Report 22058385 (Version 9)
Quarter: 2024Q2

REPORT INFORMATION
  Report Type: Report from Study
  Country: CA (occurrence: CA)
  Receive Date: 20230303
  Receipt Date: 20240529
  Transmission Date: 20240716
  Serious: Yes (Other)
  Sender: FDA-Public Use
  Company Number: CA-UCBSA-2022050382

PATIENT
  Sex: Female

DRUGS (12)
  1. CERTOLIZUMAB PEGOL [Suspect]
     Active Substance: CERTOLIZUMAB PEGOL
     Indication: Psoriatic arthropathy
     Dosage: 400 MILLIGRAM, EV 2 WEEKS(QOW)
     Route: 058
     Dates: start: 20220629, end: 2022
  2. CERTOLIZUMAB PEGOL [Suspect]
     Active Substance: CERTOLIZUMAB PEGOL
     Dosage: 400 MILLIGRAM, EV 4 WEEKS
     Route: 058
     Dates: start: 2022, end: 2022
  3. CERTOLIZUMAB PEGOL [Suspect]
     Active Substance: CERTOLIZUMAB PEGOL
     Dosage: 200 MILLIGRAM, EV 2 WEEKS(QOW)
     Route: 058
     Dates: start: 2022
  4. CERTOLIZUMAB PEGOL [Suspect]
     Active Substance: CERTOLIZUMAB PEGOL
     Dosage: 200 MILLIGRAM, EV 2 WEEKS(QOW)
     Route: 058
  5. CERTOLIZUMAB PEGOL [Suspect]
     Active Substance: CERTOLIZUMAB PEGOL
     Dosage: 400 MILLIGRAM, EV 2 WEEKS(QOW)
     Route: 058
     Dates: start: 20231106
  6. CERTOLIZUMAB PEGOL [Suspect]
     Active Substance: CERTOLIZUMAB PEGOL
     Dosage: 400 MILLIGRAM, EV 4 WEEKS
     Route: 058
  7. CERTOLIZUMAB PEGOL [Suspect]
     Active Substance: CERTOLIZUMAB PEGOL
     Dosage: 400 MILLIGRAM, EV 4 WEEKS
     Route: 058
  8. CERTOLIZUMAB PEGOL [Suspect]
     Active Substance: CERTOLIZUMAB PEGOL
     Dosage: 200 MILLIGRAM, EV 2 WEEKS(QOW)
     Route: 058
     Dates: end: 20240516
  9. DILAUDID [Concomitant]
     Active Substance: HYDROMORPHONE HYDROCHLORIDE
     Indication: Product used for unknown indication
     Dosage: UNK
  10. BIOTIN [Concomitant]
     Active Substance: BIOTIN
     Indication: Product used for unknown indication
     Dosage: UNK
  11. INDOMETHACIN [Concomitant]
     Active Substance: INDOMETHACIN
     Indication: Product used for unknown indication
     Dosage: UNK
  12. TALTZ [Concomitant]
     Active Substance: IXEKIZUMAB
     Indication: Product used for unknown indication
     Dosage: UNK

REACTIONS (33)
  - Psoriatic arthropathy [Not Recovered/Not Resolved]
  - COVID-19 [Recovered/Resolved]
  - Concussion [Not Recovered/Not Resolved]
  - Head injury [Not Recovered/Not Resolved]
  - Rotator cuff syndrome [Not Recovered/Not Resolved]
  - Contusion [Not Recovered/Not Resolved]
  - Skin laceration [Not Recovered/Not Resolved]
  - Alopecia [Unknown]
  - Road traffic accident [Unknown]
  - Guttate psoriasis [Unknown]
  - Oropharyngeal pain [Not Recovered/Not Resolved]
  - Neck pain [Not Recovered/Not Resolved]
  - Toothache [Not Recovered/Not Resolved]
  - Myalgia [Not Recovered/Not Resolved]
  - Rhinorrhoea [Not Recovered/Not Resolved]
  - Cough [Not Recovered/Not Resolved]
  - Bronchial disorder [Unknown]
  - Increased bronchial secretion [Unknown]
  - Dyspnoea [Unknown]
  - Bronchitis [Not Recovered/Not Resolved]
  - Loss of personal independence in daily activities [Unknown]
  - SARS-CoV-2 test positive [Unknown]
  - Nasopharyngitis [Not Recovered/Not Resolved]
  - Nasal congestion [Not Recovered/Not Resolved]
  - Illness [Unknown]
  - Sinusitis [Not Recovered/Not Resolved]
  - Ear infection [Not Recovered/Not Resolved]
  - Psoriasis [Unknown]
  - Product use issue [Unknown]
  - Inappropriate schedule of product administration [Unknown]
  - Drug ineffective [Unknown]
  - Bacterial infection [Unknown]
  - Viral infection [Unknown]

NARRATIVE: CASE EVENT DATE: 20220101
